FAERS Safety Report 21489789 (Version 1)
Quarter: 2022Q4

REPORT INFORMATION
  Report Type: Spontaneous
  Country: US (occurrence: US)
  Receive Date: 20221021
  Receipt Date: 20221021
  Transmission Date: 20230113
  Serious: Yes (Other)
  Sender: FDA-Public Use
  Company Number: US-BRISTOL-MYERS SQUIBB COMPANY-2022-124181

PATIENT
  Age: 58 Year
  Sex: Female

DRUGS (2)
  1. ZEPOSIA [Suspect]
     Active Substance: OZANIMOD HYDROCHLORIDE
     Indication: Multiple sclerosis
     Dosage: 0.23 MG BY MOUTH 1 TIME A DAY FOR 4 DAYS
     Route: 048
     Dates: start: 202208
  2. ZEPOSIA [Suspect]
     Active Substance: OZANIMOD HYDROCHLORIDE
     Dosage: 0.46 MG BY MOUTH 1 TIME A DAY FOR 3 DAYS
     Route: 048
     Dates: start: 202208

REACTIONS (1)
  - Drug ineffective [Unknown]
